FAERS Safety Report 4458060-8 (Version None)
Quarter: 2004Q3

REPORT INFORMATION
  Report Type: 
  Country: None (occurrence: None)
  Receive Date: 20040922
  Receipt Date: 20040916
  Transmission Date: 20050211
  Serious: Yes (Life-Threatening, Other)
  Sender: FDA-Public Use
  Company Number: 200410601BNE

PATIENT
  Age: 41 Year
  Sex: Female

DRUGS (1)
  1. MOXIFLOXACIN [Suspect]
     Indication: LOWER RESPIRATORY TRACT INFECTION
     Dosage: 400 MG, TOTAL DAILY, ORAL
     Route: 048
     Dates: start: 20040331, end: 20040831

REACTIONS (2)
  - BRONCHOSPASM [None]
  - CARDIO-RESPIRATORY ARREST [None]
